FAERS Safety Report 10779929 (Version 1)
Quarter: 2015Q1

REPORT INFORMATION
  Report Type: Spontaneous
  Country: US (occurrence: US)
  Receive Date: 20150210
  Receipt Date: 20150210
  Transmission Date: 20150721
  Serious: No
  Sender: FDA-Public Use
  Company Number: US-GLAXOSMITHKLINE-A1065903A

PATIENT

DRUGS (9)
  1. PRISTIQ EXTENDED RELEASE [Concomitant]
     Active Substance: DESVENLAFAXINE SUCCINATE
  2. ZOFRAN [Suspect]
     Active Substance: ONDANSETRON HYDROCHLORIDE
     Indication: PRODUCT USED FOR UNKNOWN INDICATION
     Dosage: UNKNOWN
     Route: 065
  3. IMITREX [Suspect]
     Active Substance: SUMATRIPTAN\SUMATRIPTAN SUCCINATE
     Indication: PRODUCT USED FOR UNKNOWN INDICATION
     Dosage: UNKNOWN
     Route: 065
  4. TOPAMAX [Concomitant]
     Active Substance: TOPIRAMATE
  5. TORADOL [Concomitant]
     Active Substance: KETOROLAC TROMETHAMINE
  6. LITHIUM [Concomitant]
     Active Substance: LITHIUM CARBONATE
  7. ELAVIL [Concomitant]
     Active Substance: AMITRIPTYLINE HYDROCHLORIDE
  8. PRAZOSIN [Concomitant]
     Active Substance: PRAZOSIN
  9. DEPAKOTE [Concomitant]
     Active Substance: DIVALPROEX SODIUM

REACTIONS (1)
  - Drug hypersensitivity [Unknown]
